FAERS Safety Report 12519909 (Version 1)
Quarter: 2016Q2

REPORT INFORMATION
  Report Type: Spontaneous
  Country: US (occurrence: US)
  Receive Date: 20160630
  Receipt Date: 20160630
  Transmission Date: 20160815
  Serious: No
  Sender: FDA-Public Use
  Company Number: US-PFIZER INC-3057375

PATIENT
  Age: 81 Year
  Sex: Male

DRUGS (1)
  1. PHYTOMENADIONE [Suspect]
     Active Substance: PHYTONADIONE
     Indication: PRODUCT USED FOR UNKNOWN INDICATION
     Dosage: 5 MG, UNK
     Route: 030

REACTIONS (2)
  - No adverse event [Unknown]
  - Wrong patient received medication [Recovered/Resolved]
